FAERS Safety Report 25999834 (Version 1)
Quarter: 2025Q4

REPORT INFORMATION
  Report Type: Spontaneous
  Country: US (occurrence: None)
  Receive Date: 20251104
  Receipt Date: 20251104
  Transmission Date: 20260118
  Serious: Yes (Hospitalization)
  Sender: FDA-CTU
  Company Number: None

PATIENT
  Sex: Female

DRUGS (4)
  1. ENTECAVIR [Suspect]
     Active Substance: ENTECAVIR
     Indication: Hepatitis B
     Dosage: OTHER FREQUENCY : EVERY MORNING ON EMPTY STOMACH;?
     Route: 048
     Dates: start: 20221126
  2. PREDNISONE [Concomitant]
     Active Substance: PREDNISONE
  3. TACROLIMUS [Concomitant]
     Active Substance: TACROLIMUS
  4. TACROLIMUS A [Concomitant]

REACTIONS (10)
  - Infection [None]
  - Constipation [None]
  - Diarrhoea [None]
  - Fluid retention [None]
  - Peripheral swelling [None]
  - Peripheral swelling [None]
  - Arthralgia [None]
  - Tremor [None]
  - Urinary tract infection [None]
  - Product dose omission issue [None]
